FAERS Safety Report 6292968-6 (Version None)
Quarter: 2009Q3

REPORT INFORMATION
  Report Type: 
  Country: None (occurrence: None)
  Receive Date: 20090731
  Receipt Date: 20090722
  Transmission Date: 20100115
  Serious: Yes (Other)
  Sender: FDA-Public Use
  Company Number: US-JNJFOC-20090503360

PATIENT
  Sex: Female
  Weight: 65 kg

DRUGS (5)
  1. REMICADE [Suspect]
     Indication: CROHN'S DISEASE
     Dosage: ON INFLIXIMAB FOR 6-7 YEARS  VS1: REPORTED ON INFILXIMAB FOR 3 YEARS
     Route: 042
  2. METHOTREXATE [Concomitant]
  3. ACYCLOVIR [Concomitant]
  4. DIFLUCAN [Concomitant]
  5. CYMBALTA [Concomitant]

REACTIONS (1)
  - MYCOBACTERIUM AVIUM COMPLEX INFECTION [None]
